FAERS Safety Report 20994286 (Version 1)
Quarter: 2022Q2

REPORT INFORMATION
  Report Type: Spontaneous
  Country: ES (occurrence: ES)
  Receive Date: 20220622
  Receipt Date: 20220622
  Transmission Date: 20220721
  Serious: Yes (Hospitalization)
  Sender: FDA-Public Use
  Company Number: ES-MYLANLABS-2022M1046427

PATIENT
  Age: 67 Year
  Sex: Male

DRUGS (15)
  1. LEVETIRACETAM [Suspect]
     Active Substance: LEVETIRACETAM
     Indication: Hyperkinesia
     Dosage: 1000 MILLIGRAM, BID
     Route: 048
  2. LEVETIRACETAM [Suspect]
     Active Substance: LEVETIRACETAM
     Indication: Movement disorder
  3. LEVETIRACETAM [Suspect]
     Active Substance: LEVETIRACETAM
     Indication: Tremor
  4. VALPROIC ACID [Suspect]
     Active Substance: VALPROIC ACID
     Indication: Hyperkinesia
     Dosage: 2100 MILLIGRAM, QD
     Route: 048
  5. VALPROIC ACID [Suspect]
     Active Substance: VALPROIC ACID
     Indication: Tremor
  6. VALPROIC ACID [Suspect]
     Active Substance: VALPROIC ACID
     Indication: Movement disorder
  7. BACLOFEN [Suspect]
     Active Substance: BACLOFEN
     Indication: Hyperkinesia
     Dosage: 25 MILLIGRAM, Q8H
     Route: 065
  8. BACLOFEN [Suspect]
     Active Substance: BACLOFEN
     Indication: Tremor
  9. BACLOFEN [Suspect]
     Active Substance: BACLOFEN
     Indication: Movement disorder
  10. TETRABENAZINE [Suspect]
     Active Substance: TETRABENAZINE
     Indication: Hyperkinesia
     Dosage: 200 MILLIGRAM, QD
     Route: 065
  11. TETRABENAZINE [Suspect]
     Active Substance: TETRABENAZINE
     Indication: Tremor
  12. TETRABENAZINE [Suspect]
     Active Substance: TETRABENAZINE
     Indication: Movement disorder
  13. AMANTADINE [Suspect]
     Active Substance: AMANTADINE
     Indication: Hyperkinesia
     Dosage: 100 MILLIGRAM, BID
     Route: 065
  14. AMANTADINE [Suspect]
     Active Substance: AMANTADINE
     Indication: Tremor
  15. AMANTADINE [Suspect]
     Active Substance: AMANTADINE
     Indication: Movement disorder

REACTIONS (1)
  - Treatment failure [Unknown]
